FAERS Safety Report 6705821 (Version 8)
Quarter: 2013Q4

REPORT INFORMATION
  Report Type: Spontaneous
  Country: US (occurrence: US)
  Receive Date: 20080722
  Receipt Date: 20131226
  Transmission Date: 20140711
  Serious: Yes (Other)
  Sender: FDA-Public Use
  Company Number: US-ROCHE-552274

PATIENT
  Age: 17 Year
  Sex: Male
  Weight: 83.9 kg

DRUGS (3)
  1. ACCUTANE [Suspect]
     Indication: ACNE CYSTIC
     Dosage: ONE ON ODD DAYS AND TWO ON EVEN DAYS.
     Route: 065
     Dates: start: 19991014, end: 20000118
  2. ACCUTANE [Suspect]
     Dosage: DOSE INCREASED TO 40 MG, TWO EVERY DAY
     Route: 065
     Dates: start: 20000118, end: 20000328
  3. IBUPROFEN [Concomitant]
     Dosage: FREQ: EVERY 2 MONTHS
     Route: 065

REACTIONS (13)
  - Inflammatory bowel disease [Recovering/Resolving]
  - Crohn^s disease [Recovering/Resolving]
  - Cholangitis sclerosing [Recovering/Resolving]
  - Colitis ulcerative [Unknown]
  - Rash pustular [Recovering/Resolving]
  - Rash pruritic [Unknown]
  - Urticaria [Unknown]
  - Upper respiratory tract infection [Unknown]
  - Seasonal allergy [Unknown]
  - Diarrhoea [Unknown]
  - Iron deficiency anaemia [Recovered/Resolved]
  - Lip swelling [Recovering/Resolving]
  - Fatigue [Unknown]
